FAERS Safety Report 18282080 (Version 2)
Quarter: 2020Q3

REPORT INFORMATION
  Report Type: Report from Study
  Country: US (occurrence: US)
  Receive Date: 20200918
  Receipt Date: 20200923
  Transmission Date: 20201103
  Serious: Yes (Hospitalization)
  Sender: FDA-Public Use
  Company Number: US-GLAXOSMITHKLINE-US2020AMR147689

PATIENT
  Age: 72 Year
  Sex: Female

DRUGS (4)
  1. NIRAPARIB [Suspect]
     Active Substance: NIRAPARIB
     Dosage: 200 MG, QD
     Dates: start: 20200730, end: 20200807
  2. GEMZAR [Suspect]
     Active Substance: GEMCITABINE HYDROCHLORIDE
     Indication: CHEMOTHERAPY
     Dosage: UNK (EVEY 3 WEEKS)
  3. NIRAPARIB [Suspect]
     Active Substance: NIRAPARIB
     Indication: MALIGNANT PERITONEAL NEOPLASM
     Dosage: 300 MG, QD
     Dates: start: 20200724
  4. CISPLATIN. [Suspect]
     Active Substance: CISPLATIN
     Indication: CHEMOTHERAPY
     Dosage: UNK,(EVERY 3 WEEK)

REACTIONS (14)
  - Dizziness [Recovering/Resolving]
  - Dehydration [Recovering/Resolving]
  - Off label use [Unknown]
  - Ill-defined disorder [Unknown]
  - Sleep disorder [Recovering/Resolving]
  - Platelet count decreased [Unknown]
  - Constipation [Recovering/Resolving]
  - Blood potassium decreased [Unknown]
  - Nausea [Recovering/Resolving]
  - Gait disturbance [Recovering/Resolving]
  - Decreased appetite [Recovering/Resolving]
  - Disorientation [Recovering/Resolving]
  - Fatigue [Unknown]
  - Renal function test abnormal [Unknown]

NARRATIVE: CASE EVENT DATE: 20200724
